FAERS Safety Report 10187369 (Version 1)
Quarter: 2014Q2

REPORT INFORMATION
  Report Type: Spontaneous
  Country: GB (occurrence: None)
  Receive Date: 20140520
  Receipt Date: 20140520
  Transmission Date: 20141212
  Serious: Yes (Other)
  Sender: FDA-Public Use
  Company Number: AUR-APL-2014-05793

PATIENT
  Age: 3 Decade
  Sex: Female
  Weight: 57.15 kg

DRUGS (2)
  1. MIRTAZAPINE [Suspect]
     Indication: DEPRESSION
     Route: 048
  2. PRAMIPEXOLE [Concomitant]

REACTIONS (1)
  - Restless legs syndrome [None]
